FAERS Safety Report 5332666-6 (Version None)
Quarter: 2007Q2

REPORT INFORMATION
  Report Type: 
  Country: None (occurrence: None)
  Receive Date: 20070523
  Receipt Date: 20070508
  Transmission Date: 20071010
  Serious: Yes (Death, Other)
  Sender: FDA-Public Use
  Company Number: US-PFIZER INC-2006109341

PATIENT
  Sex: Male

DRUGS (2)
  1. BEXTRA [Suspect]
     Indication: PAIN
     Route: 048
     Dates: start: 20040520, end: 20040913
  2. VIOXX [Suspect]
     Route: 048
     Dates: start: 20040605, end: 20040930

REACTIONS (1)
  - MYOCARDIAL INFARCTION [None]
